FAERS Safety Report 9695842 (Version 2)
Quarter: 2013Q4

REPORT INFORMATION
  Report Type: Spontaneous
  Country: FR (occurrence: FR)
  Receive Date: 20131119
  Receipt Date: 20131204
  Transmission Date: 20140711
  Serious: Yes (Hospitalization, Other)
  Sender: FDA-Public Use
  Company Number: FR-JNJFOC-20131107695

PATIENT
  Age: 65 Year
  Sex: Female

DRUGS (5)
  1. REMICADE [Suspect]
     Indication: PSORIATIC ARTHROPATHY
     Dosage: 50TH INFUSION
     Route: 042
     Dates: start: 2013
  2. REMICADE [Suspect]
     Indication: PSORIATIC ARTHROPATHY
     Dosage: 50TH INFUSION
     Route: 042
     Dates: end: 2013
  3. REMICADE [Suspect]
     Indication: PSORIATIC ARTHROPATHY
     Route: 042
  4. REMICADE [Suspect]
     Indication: PSORIATIC ARTHROPATHY
     Dosage: START DATE: 6 MONTHS AGO
     Route: 042
     Dates: start: 2013
  5. REMICADE [Suspect]
     Indication: PSORIATIC ARTHROPATHY
     Dosage: 50TH INFUSION
     Route: 042
     Dates: start: 2007

REACTIONS (5)
  - Atrial fibrillation [Recovered/Resolved]
  - Intestinal operation [Unknown]
  - Infusion related reaction [Recovered/Resolved]
  - Arthralgia [Unknown]
  - Therapeutic response decreased [Unknown]
